FAERS Safety Report 8033059-3 (Version None)
Quarter: 2012Q1

REPORT INFORMATION
  Report Type: 
  Country: None (occurrence: None)
  Receive Date: 20120110
  Receipt Date: 20120104
  Transmission Date: 20120608
  Serious: Yes (Other)
  Sender: FDA-Public Use
  Company Number: NL-PFIZER INC-2012002813

PATIENT
  Sex: Female
  Weight: 60 kg

DRUGS (2)
  1. TRIPHASIL-21 [Suspect]
     Indication: CONTRACEPTION
     Dosage: 1 DF, CYCLIC
     Dates: start: 20011001, end: 20110211
  2. NORDETTE-28 [Suspect]
     Indication: CONTRACEPTION
     Dosage: 1 DF, CYCLIC
     Dates: start: 20011001, end: 20110211

REACTIONS (3)
  - PANIC DISORDER [None]
  - HEADACHE [None]
  - AFFECTIVE DISORDER [None]
